FAERS Safety Report 5490980-8 (Version None)
Quarter: 2007Q4

REPORT INFORMATION
  Report Type: 
  Country: None (occurrence: None)
  Receive Date: 20071019
  Receipt Date: 20071009
  Transmission Date: 20080405
  Serious: Yes (Other)
  Sender: FDA-Public Use
  Company Number: DE-PFIZER INC-2007079883

PATIENT
  Sex: Female

DRUGS (6)
  1. AROMASIN [Suspect]
     Route: 048
  2. HYDROCHLOROTHIAZIDE [Concomitant]
     Route: 048
  3. MOLSIDOMINE [Concomitant]
     Route: 048
  4. RAMIPRIL [Concomitant]
     Route: 048
  5. MOXONIDINE [Concomitant]
     Route: 048
  6. METOHEXAL [Concomitant]
     Route: 048

REACTIONS (3)
  - PERIPHERAL VASCULAR DISORDER [None]
  - SKIN ULCER [None]
  - STASIS DERMATITIS [None]
